FAERS Safety Report 17173693 (Version 1)
Quarter: 2019Q4

REPORT INFORMATION
  Report Type: Report from Study
  Country: None (occurrence: GR)
  Receive Date: 20191218
  Receipt Date: 20191218
  Transmission Date: 20200122
  Serious: Yes (Hospitalization)
  Sender: FDA-Public Use
  Company Number: GR-ABBVIE-19K-066-3196605-00

PATIENT
  Age: 53 Year
  Sex: Female

DRUGS (4)
  1. SEROPIN [Concomitant]
     Indication: COMPULSIONS
     Route: 048
  2. XANAX [Concomitant]
     Active Substance: ALPRAZOLAM
     Indication: DEPRESSION
     Route: 048
  3. DUODOPA [Suspect]
     Active Substance: CARBIDOPA\LEVODOPA
     Indication: PARKINSON^S DISEASE
     Dosage: MORNING DOSE: 7ML; CONTINUOUS RATE: 2.7ML/H; EXTRA DOSE: 1.7ML
     Route: 050
     Dates: start: 20160208
  4. MINITRAN [Concomitant]
     Active Substance: NITROGLYCERIN
     Indication: DEPRESSION
     Dosage: (25+4)MG
     Route: 048

REACTIONS (2)
  - Hand fracture [Not Recovered/Not Resolved]
  - Fall [Recovered/Resolved]

NARRATIVE: CASE EVENT DATE: 20191205
